FAERS Safety Report 18866265 (Version 1)
Quarter: 2021Q1

REPORT INFORMATION
  Report Type: Report from Study
  Country: CA (occurrence: CA)
  Receive Date: 20210209
  Receipt Date: 20210209
  Transmission Date: 20210420
  Serious: Yes (Hospitalization)
  Sender: FDA-Public Use
  Company Number: PHHY2017CA197383

PATIENT
  Age: 40 Year
  Sex: Female

DRUGS (7)
  1. VITAMIN D [Concomitant]
     Active Substance: VITAMIN D NOS
     Indication: PRODUCT USED FOR UNKNOWN INDICATION
     Dosage: UNK, UNKNOWN
     Route: 065
  2. COSENTYX [Suspect]
     Active Substance: SECUKINUMAB
     Indication: PSORIATIC ARTHROPATHY
     Dosage: 300 MG, QW WEEK 0,1,2,3,4, FOLLOWED BY MONTHLY MAINTENANCE DOSING AT 300 MG)
     Route: 065
     Dates: start: 20170413, end: 202002
  3. PRO?CLONAZEPAM [Concomitant]
     Active Substance: CLONAZEPAM
     Indication: PRODUCT USED FOR UNKNOWN INDICATION
     Dosage: UNK
     Route: 065
     Dates: start: 202007
  4. COSENTYX [Suspect]
     Active Substance: SECUKINUMAB
     Indication: PSORIASIS
     Dosage: 300 MG, QMO
     Route: 058
     Dates: start: 20170413
  5. COSENTYX [Suspect]
     Active Substance: SECUKINUMAB
     Dosage: 300 MG, QMO
     Route: 058
  6. ATIVAN [Concomitant]
     Active Substance: LORAZEPAM
     Indication: PRODUCT USED FOR UNKNOWN INDICATION
     Dosage: UNK, UNKNOWN
     Route: 065
     Dates: end: 202007
  7. VITAMIN B12 [Concomitant]
     Active Substance: CYANOCOBALAMIN
     Indication: PRODUCT USED FOR UNKNOWN INDICATION
     Route: 065

REACTIONS (20)
  - Gait disturbance [Unknown]
  - Swelling [Recovering/Resolving]
  - Dysstasia [Unknown]
  - Muscle twitching [Unknown]
  - Rash macular [Unknown]
  - Thyroid disorder [Unknown]
  - Back pain [Unknown]
  - Quality of life decreased [Unknown]
  - Anxiety [Unknown]
  - Product dose omission issue [Unknown]
  - Tremor [Unknown]
  - Peripheral swelling [Unknown]
  - Joint swelling [Unknown]
  - Pain [Unknown]
  - Insomnia [Unknown]
  - Skin exfoliation [Unknown]
  - Arthralgia [Unknown]
  - Bone pain [Unknown]
  - Psoriasis [Unknown]
  - Movement disorder [Unknown]

NARRATIVE: CASE EVENT DATE: 20201215
